FAERS Safety Report 8240312 (Version 3)
Quarter: 2013Q3

REPORT INFORMATION
  Report Type: Report from Study
  Country: US (occurrence: US)
  Receive Date: 20111110
  Receipt Date: 20130722
  Transmission Date: 20140515
  Serious: Yes (Hospitalization)
  Sender: FDA-Public Use
  Company Number: US-UCBSA-028218

PATIENT
  Age: 51 Year
  Sex: Female
  Weight: 141.52 kg

DRUGS (5)
  1. CIMZIA [Suspect]
     Indication: CROHN^S DISEASE
     Route: 058
     Dates: start: 20101204
  2. BUDESONIDE [Concomitant]
     Indication: CROHN^S DISEASE
     Dates: start: 20100727, end: 20110701
  3. PREDNISONE [Concomitant]
     Indication: CROHN^S DISEASE
     Dates: start: 20100823, end: 20110401
  4. ACETAMINOPHEN [Concomitant]
     Indication: CROHN^S DISEASE
  5. ATENOLOL [Concomitant]

REACTIONS (1)
  - Abdominal wall abscess [Recovered/Resolved]
